FAERS Safety Report 11110707 (Version 1)
Quarter: 2015Q2

REPORT INFORMATION
  Report Type: Spontaneous
  Country: US (occurrence: US)
  Receive Date: 20150513
  Receipt Date: 20150513
  Transmission Date: 20150821
  Serious: No
  Sender: FDA-Public Use
  Company Number: US-GLAXOSMITHKLINE-US2015017325

PATIENT
  Age: 61 Year

DRUGS (1)
  1. NICODERM CQ [Suspect]
     Active Substance: NICOTINE
     Indication: SMOKING CESSATION THERAPY
     Dosage: 14 MG, UNK

REACTIONS (12)
  - Application site pruritus [Not Recovered/Not Resolved]
  - Application site erythema [Unknown]
  - Ear discomfort [Not Recovered/Not Resolved]
  - Rhinorrhoea [Not Recovered/Not Resolved]
  - Sneezing [Not Recovered/Not Resolved]
  - Anger [Unknown]
  - Product quality issue [Unknown]
  - Insomnia [Unknown]
  - Nicotine dependence [Unknown]
  - Pyrexia [Not Recovered/Not Resolved]
  - Irritability [Unknown]
  - Mucous membrane disorder [Not Recovered/Not Resolved]
